FAERS Safety Report 18483952 (Version 4)
Quarter: 2023Q1

REPORT INFORMATION
  Report Type: Other
  Country: US (occurrence: None)
  Receive Date: 20201109
  Receipt Date: 20230118
  Transmission Date: 20230418
  Serious: Yes (Other)
  Sender: FDA-Public Use
  Company Number: US-ROCHE-2351869

PATIENT
  Age: 51 Year
  Sex: Male
  Weight: 61.4 kg

DRUGS (6)
  1. COTELLIC [Suspect]
     Active Substance: COBIMETINIB
     Indication: Erdheim-Chester disease
     Route: 048
     Dates: start: 2017
  2. COTELLIC [Suspect]
     Active Substance: COBIMETINIB
     Indication: Metabolic disorder
     Dosage: TAKE 3 TABLET(S) BY MOUTH DAILY 3 WEEK(S) ON, 1 WEEK(S) OFF
     Route: 048
  3. COTELLIC [Suspect]
     Active Substance: COBIMETINIB
     Indication: Glaucoma
  4. COTELLIC [Suspect]
     Active Substance: COBIMETINIB
     Indication: Histiocytic sarcoma
  5. COTELLIC [Suspect]
     Active Substance: COBIMETINIB
     Indication: Skin disorder
  6. COTELLIC [Suspect]
     Active Substance: COBIMETINIB
     Indication: Acute myeloid leukaemia

REACTIONS (6)
  - Recurrent cancer [Unknown]
  - Abdominal distension [Recovered/Resolved]
  - Diarrhoea [Recovered/Resolved]
  - Off label use [Unknown]
  - Thyroid disorder [Unknown]
  - Brain neoplasm malignant [Unknown]

NARRATIVE: CASE EVENT DATE: 20170101
